FAERS Safety Report 6876541-4 (Version None)
Quarter: 2010Q3

REPORT INFORMATION
  Report Type: 
  Country: None (occurrence: None)
  Receive Date: 20100723
  Receipt Date: 20100713
  Transmission Date: 20110219
  Serious: Yes (Other)
  Sender: FDA-Public Use
  Company Number: 232131J08USA

PATIENT
  Age: 19 Year
  Sex: Female
  Weight: 91 kg

DRUGS (3)
  1. REBIF [Suspect]
     Indication: MULTIPLE SCLEROSIS
     Dosage: 44 MCG, 3 IN 1 WK; SUBCUTANEOUS
     Route: 058
     Dates: start: 20071115, end: 20100226
  2. FLEXERIL [Concomitant]
  3. ADVIL LIQUI-GELS [Concomitant]

REACTIONS (2)
  - CONVULSION [None]
  - ECONOMIC PROBLEM [None]
